FAERS Safety Report 22026864 (Version 1)
Quarter: 2023Q1

REPORT INFORMATION
  Report Type: Spontaneous
  Country: US (occurrence: None)
  Receive Date: 20230223
  Receipt Date: 20230223
  Transmission Date: 20230418
  Serious: No
  Sender: FDA-Public Use
  Company Number: US-ROCHE-3205206

PATIENT
  Sex: Female

DRUGS (1)
  1. XOLAIR [Suspect]
     Active Substance: OMALIZUMAB
     Indication: Urticaria
     Dosage: 150 MG VIAL
     Route: 058
     Dates: start: 20220926

REACTIONS (2)
  - Urticaria [Not Recovered/Not Resolved]
  - Swelling face [Not Recovered/Not Resolved]
